FAERS Safety Report 13376604 (Version 1)
Quarter: 2017Q1

REPORT INFORMATION
  Report Type: Spontaneous
  Country: US (occurrence: US)
  Receive Date: 20170327
  Receipt Date: 20170327
  Transmission Date: 20170429
  Serious: Yes (Death)
  Sender: FDA-Public Use
  Company Number: None

PATIENT
  Age: 45 Year
  Sex: Female

DRUGS (1)
  1. TIZANDINE HCL [Suspect]
     Active Substance: TIZANIDINE HYDROCHLORIDE
     Route: 048

REACTIONS (1)
  - Death [None]
